FAERS Safety Report 18541410 (Version 2)
Quarter: 2020Q4

REPORT INFORMATION
  Report Type: Spontaneous
  Country: US (occurrence: US)
  Receive Date: 20201124
  Receipt Date: 20201202
  Transmission Date: 20210114
  Serious: Yes (Hospitalization, Other)
  Sender: FDA-Public Use
  Company Number: US-PFIZER INC-2020461548

PATIENT
  Age: 60 Year
  Sex: Female

DRUGS (9)
  1. QUETIAPINE. [Concomitant]
     Active Substance: QUETIAPINE
     Indication: AFFECTIVE DISORDER
     Dosage: 50 MG, DAILY (EVERY NIGHT AT BEDTIME)
  2. DULOXETINE. [Concomitant]
     Active Substance: DULOXETINE
     Indication: DEPRESSION
     Dosage: 30 MG, DAILY
  3. QUETIAPINE. [Concomitant]
     Active Substance: QUETIAPINE
     Dosage: 150 MG, DAILY (EVERY NIGHT AT BEDTIME)
  4. DEXAMETHASONE. [Suspect]
     Active Substance: DEXAMETHASONE
     Indication: BRAIN OEDEMA
     Dosage: 10 MG, 4X/DAY (EVERY 6 HOURS)
     Route: 042
  5. CODEINE [Suspect]
     Active Substance: CODEINE
     Indication: PAIN
     Dosage: 30 MG, 4X/DAY (EVERY 6 HOURS; AS NEEDED)
  6. DULOXETINE. [Concomitant]
     Active Substance: DULOXETINE
     Dosage: 60 MG, DAILY
  7. LEVETIRACETAM. [Suspect]
     Active Substance: LEVETIRACETAM
     Indication: SEIZURE PROPHYLAXIS
     Dosage: 500 MG, 2X/DAY (EVERY 12 HOURS)
  8. DEXAMETHASONE. [Suspect]
     Active Substance: DEXAMETHASONE
     Dosage: 4 MG, 4X/DAY (EVERY 6 HOURS)
     Route: 042
  9. BUSPIRONE [Concomitant]
     Active Substance: BUSPIRONE HYDROCHLORIDE
     Dosage: 10 MG, DAILY

REACTIONS (13)
  - Patient uncooperative [Recovering/Resolving]
  - Pressure of speech [Unknown]
  - Anger [Recovering/Resolving]
  - Neuropsychiatric symptoms [Recovering/Resolving]
  - Affect lability [Recovering/Resolving]
  - Irritability [Recovering/Resolving]
  - Impulsive behaviour [Recovering/Resolving]
  - Toxicity to various agents [Recovering/Resolving]
  - Depression [Recovering/Resolving]
  - Mental status changes [Recovering/Resolving]
  - Agitation [Recovering/Resolving]
  - Personality change [Recovering/Resolving]
  - Delusion [Recovering/Resolving]
